FAERS Safety Report 24744443 (Version 1)
Quarter: 2024Q4

REPORT INFORMATION
  Report Type: Spontaneous
  Country: US (occurrence: US)
  Receive Date: 20241217
  Receipt Date: 20241217
  Transmission Date: 20250115
  Serious: Yes (Other)
  Sender: DR REDDYS
  Company Number: US-DRL-USA-LIT/USA/24/0018365

PATIENT
  Age: 89 Year
  Sex: Male

DRUGS (11)
  1. TIMOLOL [Suspect]
     Active Substance: TIMOLOL\TIMOLOL MALEATE
     Indication: Glaucoma
     Dosage: 0.5% TID
     Route: 061
  2. BRIMONIDINE [Suspect]
     Active Substance: BRIMONIDINE TARTRATE
     Indication: Glaucoma
     Route: 061
  3. DIFLUPREDNATE [Suspect]
     Active Substance: DIFLUPREDNATE
     Indication: Glaucoma
  4. AFLIBERCEPT [Concomitant]
     Active Substance: AFLIBERCEPT
     Indication: Glaucoma
     Dosage: INTRAVITREAL 2 MG/0.05 ML WAS INJECTED
     Route: 042
  5. NETARSUDIL [Concomitant]
     Active Substance: NETARSUDIL
     Indication: Glaucoma
     Route: 061
  6. LATANOPROST [Concomitant]
     Active Substance: LATANOPROST
     Indication: Glaucoma
     Dosage: 0.005% QD
     Route: 061
  7. PREDNISOLONE [Concomitant]
     Active Substance: PREDNISOLONE
     Indication: Glaucoma
     Dosage: 1% OS QID
     Route: 061
  8. DORZOLAMIDE [Concomitant]
     Active Substance: DORZOLAMIDE
     Indication: Glaucoma
     Dosage: 1% OS QID
  9. ATROPINE [Concomitant]
     Active Substance: ATROPINE
     Indication: Glaucoma
  10. TRIAMCINOLONE [Concomitant]
     Active Substance: TRIAMCINOLONE
     Indication: Glaucoma
     Dosage: 40 MG/1.0 ML
  11. BEVACIZUMAB [Concomitant]
     Active Substance: BEVACIZUMAB
     Indication: Glaucoma
     Dosage: INTRAVITREAL (1.25 MG/0.05 ML)

REACTIONS (2)
  - Drug ineffective [Unknown]
  - Product use in unapproved indication [Unknown]
